FAERS Safety Report 9027872 (Version 3)
Quarter: 2014Q1

REPORT INFORMATION
  Report Type: Spontaneous
  Country: DE (occurrence: DE)
  Receive Date: 20130124
  Receipt Date: 20140313
  Transmission Date: 20141002
  Serious: Yes (Other)
  Sender: FDA-Public Use
  Company Number: DE-AMGEN-DEUSP2012076090

PATIENT
  Age: 89 Year
  Sex: Female

DRUGS (1)
  1. PROLIA [Suspect]
     Indication: OSTEOPOROSIS POSTMENOPAUSAL
     Dosage: UNK UNK, Q6MO
     Route: 058
     Dates: start: 201011

REACTIONS (12)
  - Acquired diaphragmatic eventration [Unknown]
  - Pulmonary embolism [Unknown]
  - Renal failure [Unknown]
  - Pneumonia [Unknown]
  - Peritonitis [Recovering/Resolving]
  - Pleurisy [Unknown]
  - Multimorbidity [Unknown]
  - Renal mass [Unknown]
  - Hepatic cyst [Unknown]
  - Renal cyst [Unknown]
  - Hypertensive heart disease [Unknown]
  - Oesophageal candidiasis [Unknown]
